FAERS Safety Report 7358951-4 (Version None)
Quarter: 2011Q1

REPORT INFORMATION
  Report Type: 
  Country: None (occurrence: None)
  Receive Date: 20110317
  Receipt Date: 20110308
  Transmission Date: 20110831
  Serious: Yes (Other)
  Sender: FDA-Public Use
  Company Number: DE-ELI_LILLY_AND_COMPANY-DE201103003074

PATIENT
  Age: 43 Year
  Sex: Male
  Weight: 45 kg

DRUGS (5)
  1. CETUXIMAB [Suspect]
     Dosage: 250 MG/M2, OTHER (ONCE WEEKLY ON DAYS ONE, EIGHT,15 EVERY 3 WEEK CYCLE
     Route: 042
     Dates: end: 20110222
  2. GEMCITABINE HYDROCHLORIDE [Suspect]
     Indication: NON-SMALL CELL LUNG CANCER
     Dosage: 1250 MG/M2, OTHER (ON DAY ONE AND EIGHT OF EACH 3 WEEK CYCLE)
     Route: 042
     Dates: start: 20101116, end: 20110214
  3. CETUXIMAB [Suspect]
     Indication: NON-SMALL CELL LUNG CANCER
     Dosage: 400 MG/M2, OTHER (INITIAL DOSE)
     Route: 042
     Dates: start: 20101116
  4. OTHER PHARMA COMPANY INV DRUG [Suspect]
     Indication: NON-SMALL CELL LUNG CANCER
     Dosage: 2000 MG, OTHER (ONCE WEEKLY ON DAYS 1.8 AND 15 OD EACH WEEK CYCLE)
     Route: 042
     Dates: start: 20101116, end: 20110222
  5. CISPLATIN [Suspect]
     Indication: NON-SMALL CELL LUNG CANCER
     Dosage: 75 MG/M2, OTHER(ONCE EVERY THREE WEEKS)
     Route: 042
     Dates: start: 20101116, end: 20110208

REACTIONS (1)
  - GENERAL PHYSICAL HEALTH DETERIORATION [None]
